FAERS Safety Report 8229652-5 (Version None)
Quarter: 2012Q1

REPORT INFORMATION
  Report Type: 
  Country: None (occurrence: None)
  Receive Date: 20120322
  Receipt Date: 20120316
  Transmission Date: 20120608
  Serious: Yes (Other)
  Sender: FDA-Public Use
  Company Number: PHHY2012FR023834

PATIENT
  Sex: Male

DRUGS (1)
  1. GILENYA [Suspect]
     Indication: MULTIPLE SCLEROSIS
     Dosage: UNK UKN, UNK
     Dates: start: 20120309

REACTIONS (4)
  - CHEST PAIN [None]
  - HYPERTHERMIA [None]
  - DYSPNOEA [None]
  - DYSPNOEA EXERTIONAL [None]
